FAERS Safety Report 4591745-1 (Version None)
Quarter: 2005Q1

REPORT INFORMATION
  Report Type: 
  Country: None (occurrence: None)
  Receive Date: 20050218
  Receipt Date: 20050211
  Transmission Date: 20050727
  Serious: Yes (Hospitalization, Other)
  Sender: FDA-Public Use
  Company Number: KII-2005-0015182

PATIENT
  Age: 47 Year
  Sex: Female

DRUGS (4)
  1. OXYCONTIN [Suspect]
     Dosage: ORAL
     Route: 048
  2. SSRI [Suspect]
     Dosage: ORAL
     Route: 048
  3. ANTIHISTAMINES FOR SYSTEMIC USE [Suspect]
     Dosage: ORAL
     Route: 048
  4. BENZODIAZEPINE DERIVATIVES [Suspect]

REACTIONS (11)
  - AGITATION [None]
  - CHEST PAIN [None]
  - CONFUSIONAL STATE [None]
  - DRUG ABUSER [None]
  - DYSPNOEA [None]
  - HYPERHIDROSIS [None]
  - LETHARGY [None]
  - MYDRIASIS [None]
  - OVERDOSE [None]
  - SEPSIS [None]
  - SINUS ARRHYTHMIA [None]
